FAERS Safety Report 16270992 (Version 1)
Quarter: 2019Q2

REPORT INFORMATION
  Report Type: Spontaneous
  Country: TR (occurrence: TR)
  Receive Date: 20190503
  Receipt Date: 20190503
  Transmission Date: 20190711
  Serious: Yes (Death, Other)
  Sender: FDA-Public Use
  Company Number: TR-BAYER-2019-088495

PATIENT
  Age: 61 Year
  Sex: Female

DRUGS (3)
  1. RIFAMPICIN + ISONIAZID + PYRAZINAMIDE [Suspect]
     Active Substance: ISONIAZID\PYRAZINAMIDE\RIFAMPIN
     Indication: MENINGITIS TUBERCULOUS
     Dosage: UNK
  2. DEXAMETHASONE. [Suspect]
     Active Substance: DEXAMETHASONE
     Indication: MENINGITIS TUBERCULOUS
     Dosage: UNK
  3. MOXIFLOXACIN IV [Suspect]
     Active Substance: MOXIFLOXACIN
     Indication: MENINGITIS TUBERCULOUS
     Dosage: UNK

REACTIONS (8)
  - Cryptococcosis [None]
  - Hydrocephalus [None]
  - Brain oedema [None]
  - Depressed level of consciousness [None]
  - Death [Fatal]
  - Nervous system disorder [None]
  - Cerebrospinal fluid leakage [None]
  - CSF white blood cell count positive [None]
